FAERS Safety Report 7414427-7 (Version None)
Quarter: 2011Q2

REPORT INFORMATION
  Report Type: 
  Country: None (occurrence: None)
  Receive Date: 20110414
  Receipt Date: 20110408
  Transmission Date: 20111010
  Serious: Yes (Hospitalization)
  Sender: FDA-Public Use
  Company Number: US-BAYER-201036412NA

PATIENT
  Sex: Female

DRUGS (6)
  1. YAZ [Suspect]
     Indication: PRODUCT USED FOR UNKNOWN INDICATION
     Dosage: UNK UNK, UNK
     Route: 048
     Dates: start: 20070201, end: 20080401
  2. PHENERGAN HCL [Concomitant]
  3. NEXIUM [Concomitant]
  4. DARVOCET-N 50 [Concomitant]
  5. PRILOSEC [Concomitant]
  6. EMETROL [Concomitant]

REACTIONS (8)
  - DEPRESSION [None]
  - FEAR OF DEATH [None]
  - CHOLECYSTITIS CHRONIC [None]
  - BILIARY DYSKINESIA [None]
  - EMOTIONAL DISTRESS [None]
  - ABDOMINAL PAIN [None]
  - INJURY [None]
  - NERVOUSNESS [None]
